FAERS Safety Report 7441697-1 (Version None)
Quarter: 2011Q2

REPORT INFORMATION
  Report Type: 
  Country: None (occurrence: None)
  Receive Date: 20110428
  Receipt Date: 20101116
  Transmission Date: 20111010
  Serious: No
  Sender: FDA-Public Use
  Company Number: A0893107A

PATIENT
  Sex: Female

DRUGS (2)
  1. SEREVENT [Suspect]
     Route: 065
  2. QVAR 40 [Suspect]
     Route: 065

REACTIONS (2)
  - DYSPNOEA [None]
  - DRUG INEFFECTIVE [None]
